FAERS Safety Report 8573940-X (Version None)
Quarter: 2012Q2

REPORT INFORMATION
  Report Type: 
  Country: None (occurrence: None)
  Receive Date: 20120423
  Receipt Date: 20091021
  Transmission Date: 20120825
  Serious: Yes (Hospitalization)
  Sender: FDA-Public Use
  Company Number: PHEH2009US11589

PATIENT
  Age: 22 Year
  Sex: Male
  Weight: 65 kg

DRUGS (3)
  1. HYDROXYUREA [Concomitant]
  2. EXJADE [Suspect]
     Indication: SICKLE CELL ANAEMIA
     Dosage: 500 MG, TID, ORAL
     Route: 048
     Dates: start: 20090610
  3. FOLIC ACID [Concomitant]

REACTIONS (11)
  - ARTHRALGIA [None]
  - HAEMOGLOBIN DECREASED [None]
  - DYSPNOEA [None]
  - SICKLE CELL ANAEMIA WITH CRISIS [None]
  - NAUSEA [None]
  - BACK PAIN [None]
  - WHITE BLOOD CELL COUNT INCREASED [None]
  - BONE PAIN [None]
  - RETICULOCYTE COUNT INCREASED [None]
  - PAIN [None]
  - OCULAR ICTERUS [None]
